FAERS Safety Report 9675252 (Version 2)
Quarter: 2013Q4

REPORT INFORMATION
  Report Type: Spontaneous
  Country: US (occurrence: None)
  Receive Date: 20131105
  Receipt Date: 20131220
  Transmission Date: 20140711
  Serious: Yes (Death)
  Sender: FDA-Public Use
  Company Number: 2013US002763

PATIENT
  Age: 69 Year
  Sex: Female

DRUGS (5)
  1. ICLUSIG [Suspect]
     Indication: CHRONIC MYELOID LEUKAEMIA
     Route: 048
     Dates: end: 20131017
  2. CYTARABINE [Concomitant]
  3. DAUNORUBICIN [Concomitant]
  4. IDARUBICIN [Concomitant]
  5. MITOXANTRONE [Concomitant]

REACTIONS (5)
  - Death [None]
  - Necrotising fasciitis [None]
  - Blast crisis in myelogenous leukaemia [None]
  - Full blood count decreased [None]
  - Immunosuppression [None]
